FAERS Safety Report 18403099 (Version 3)
Quarter: 2022Q2

REPORT INFORMATION
  Report Type: Spontaneous
  Country: JP (occurrence: JP)
  Receive Date: 20201020
  Receipt Date: 20220525
  Transmission Date: 20220720
  Serious: Yes (Hospitalization, Other)
  Sender: FDA-Public Use
  Company Number: JP-MSD-M2020-21764

PATIENT
  Age: 69 Year
  Sex: Female
  Weight: 39 kg

DRUGS (5)
  1. KEYTRUDA [Suspect]
     Active Substance: PEMBROLIZUMAB
     Indication: Non-small cell lung cancer stage IV
     Dosage: 200 MILLIGRAM, Q3W
     Route: 041
     Dates: start: 20200401, end: 20200916
  2. ALIMTA [Suspect]
     Active Substance: PEMETREXED DISODIUM
     Indication: Non-small cell lung cancer stage IV
     Dosage: 660 MILLIGRAM/DAY
     Route: 041
     Dates: start: 20200401, end: 20200916
  3. CARBOPLATIN [Concomitant]
     Active Substance: CARBOPLATIN
     Indication: Non-small cell lung cancer stage IV
     Dosage: 489 MILLIGRAM/DAY
     Route: 041
     Dates: start: 20200401, end: 20200603
  4. PANVITAN [ASCORBIC ACID;CALCIUM PANTOTHENATE;CYANOCOBALAMIN;ERGOCALCIF [Concomitant]
     Indication: Prophylaxis
     Dosage: 1 GRAM/DAY
     Route: 048
     Dates: start: 20200326, end: 20201020
  5. DEXTROMETHORPHAN HYDROBROMIDE [Concomitant]
     Active Substance: DEXTROMETHORPHAN HYDROBROMIDE
     Indication: Non-small cell lung cancer stage IV
     Dosage: 15 MILLIGRAM, TID
     Route: 048
     Dates: start: 20200318

REACTIONS (5)
  - Renal tubular atrophy [Unknown]
  - Kidney fibrosis [Unknown]
  - Blood creatinine increased [Recovering/Resolving]
  - Osteoporosis [Unknown]
  - Insomnia [Unknown]

NARRATIVE: CASE EVENT DATE: 20201007
